FAERS Safety Report 9549317 (Version 1)
Quarter: 2013Q3

REPORT INFORMATION
  Report Type: Spontaneous
  Country: US (occurrence: None)
  Receive Date: 20130923
  Receipt Date: 20130923
  Transmission Date: 20140515
  Serious: No
  Sender: FDA-Public Use
  Company Number: None

PATIENT
  Age: 53 Year
  Sex: Male

DRUGS (1)
  1. OXALIPLATIN [Suspect]

REACTIONS (3)
  - Heart rate increased [None]
  - Blood glucose increased [None]
  - Myocardial infarction [None]
